FAERS Safety Report 7073808-4 (Version None)
Quarter: 2010Q4

REPORT INFORMATION
  Report Type: 
  Country: None (occurrence: None)
  Receive Date: 20101029
  Receipt Date: 20100818
  Transmission Date: 20110411
  Serious: No
  Sender: FDA-Public Use
  Company Number: A0876508A

PATIENT
  Age: 82 Year
  Sex: Male

DRUGS (7)
  1. ADVAIR DISKUS 100/50 [Suspect]
     Indication: ASTHMA
     Route: 055
     Dates: start: 20100801
  2. ASCORBIC ACID [Concomitant]
  3. HYDROXYCHLOROQUINE [Concomitant]
  4. SYNTHROID [Concomitant]
     Dosage: 200MG PER DAY
  5. SAW PALMETTO [Concomitant]
  6. CHLORAMPHENICOL [Concomitant]
  7. SIMVASTATIN [Concomitant]

REACTIONS (1)
  - DRUG INEFFECTIVE [None]
